FAERS Safety Report 15961031 (Version 1)
Quarter: 2019Q1

REPORT INFORMATION
  Report Type: Spontaneous
  Country: FR (occurrence: FR)
  Receive Date: 20190214
  Receipt Date: 20190214
  Transmission Date: 20190417
  Serious: Yes (Death)
  Sender: FDA-Public Use
  Company Number: FR-MYLANLABS-2019M1013162

PATIENT
  Age: 69 Year
  Sex: Male
  Weight: 79 kg

DRUGS (15)
  1. LANTUS [Suspect]
     Active Substance: INSULIN GLARGINE
     Indication: TYPE 1 DIABETES MELLITUS
     Dosage: UNK
     Route: 058
     Dates: end: 20180110
  2. ALLOPURINOL. [Suspect]
     Active Substance: ALLOPURINOL
     Indication: PRODUCT USED FOR UNKNOWN INDICATION
     Dosage: 300 MILLIGRAM, QD
     Route: 048
     Dates: end: 20180110
  3. DUOPLAVIN [Suspect]
     Active Substance: ASPIRIN\CLOPIDOGREL
     Indication: THROMBOSIS PROPHYLAXIS
     Dosage: 1 DOSAGE FORM, QD
     Route: 048
     Dates: end: 20180110
  4. NEBIVOLOL. [Suspect]
     Active Substance: NEBIVOLOL
     Indication: HYPERTENSION
     Dosage: 5 MILLIGRAM, QD
     Route: 048
     Dates: end: 20180110
  5. VITAMIN B6 [Suspect]
     Active Substance: PYRIDOXINE HYDROCHLORIDE
     Indication: PRODUCT USED FOR UNKNOWN INDICATION
     Dosage: 2 DOSAGE FORM, QD
     Route: 048
     Dates: end: 20180110
  6. VITAMIN B6 [Suspect]
     Active Substance: PYRIDOXINE HYDROCHLORIDE
     Dosage: 500 MILLIGRAM
     Route: 048
     Dates: end: 20180110
  7. DIAMICRON [Suspect]
     Active Substance: GLICLAZIDE
     Indication: TYPE 1 DIABETES MELLITUS
     Dosage: 2 DOSAGE FORM, QD
     Route: 048
     Dates: end: 20180110
  8. LEVOTHYROX [Suspect]
     Active Substance: LEVOTHYROXINE
     Indication: THYROID DISORDER
  9. PERINDOPRIL [Suspect]
     Active Substance: PERINDOPRIL
     Indication: HYPERTENSION
     Dosage: 2 MILLIGRAM, QD (PERINDOPRIL/INDAPAMIDE: 2/0.625MG )
     Route: 048
     Dates: end: 20180110
  10. GLICLAZIDE [Suspect]
     Active Substance: GLICLAZIDE
     Indication: TYPE 1 DIABETES MELLITUS
     Dosage: 120 MILLIGRAM, QD
     Route: 048
     Dates: end: 20180110
  11. PROCORALAN [Suspect]
     Active Substance: IVABRADINE
     Indication: HYPERTENSION
     Dosage: 2 DOSAGE FORM, QD
     Route: 048
     Dates: end: 20180110
  12. JANUMET [Suspect]
     Active Substance: METFORMIN HYDROCHLORIDE\SITAGLIPTIN PHOSPHATE
     Indication: TYPE 1 DIABETES MELLITUS
     Dosage: 2 DOSAGE FORM, QD
     Route: 048
     Dates: end: 20180110
  13. SERESTA [Suspect]
     Active Substance: OXAZEPAM
     Indication: ANXIOLYTIC THERAPY
     Dosage: 1 DOSAGE FORM, QD
     Route: 048
     Dates: end: 20180110
  14. INDAPAMIDE. [Suspect]
     Active Substance: INDAPAMIDE
     Indication: HYPERTENSION
     Dosage: 0.63 MILLIGRAM, QD
     Route: 048
     Dates: end: 20180110
  15. LEVOTHYROX [Suspect]
     Active Substance: LEVOTHYROXINE
     Indication: HYPOTHYROIDISM
     Dosage: 1 DOSAGE FORM, QD
     Route: 058
     Dates: end: 20180110

REACTIONS (4)
  - Anaemia [Fatal]
  - Acute kidney injury [Fatal]
  - Lactic acidosis [Fatal]
  - Hyperkalaemia [Fatal]

NARRATIVE: CASE EVENT DATE: 20180110
